FAERS Safety Report 22280734 (Version 1)
Quarter: 2023Q2

REPORT INFORMATION
  Report Type: Spontaneous
  Country: FR (occurrence: FR)
  Receive Date: 20230503
  Receipt Date: 20230503
  Transmission Date: 20230721
  Serious: Yes (Other)
  Sender: FDA-Public Use
  Company Number: None

PATIENT
  Age: 60 Year
  Sex: Female

DRUGS (2)
  1. DOXYCYCLINE [Suspect]
     Active Substance: DOXYCYCLINE
     Indication: Abscess
     Dosage: 200 MG, QD
     Route: 048
     Dates: start: 20230421, end: 20230423
  2. RIFAMPIN [Suspect]
     Active Substance: RIFAMPIN
     Indication: Abscess
     Dosage: 300 MG, BID
     Route: 048
     Dates: start: 20230422, end: 20230423

REACTIONS (2)
  - Pruritus [Recovering/Resolving]
  - Rash erythematous [Recovering/Resolving]

NARRATIVE: CASE EVENT DATE: 20230423
